FAERS Safety Report 9613394 (Version 2)
Quarter: 2014Q1

REPORT INFORMATION
  Report Type: Spontaneous
  Country: US (occurrence: US)
  Receive Date: 20131010
  Receipt Date: 20140328
  Transmission Date: 20141002
  Serious: Yes (Hospitalization)
  Sender: FDA-Public Use
  Company Number: US-B.I. PHARMACEUTICALS,INC./RIDGEFIELD-2013-BI-31564BP

PATIENT
  Age: 52 Year
  Sex: Male
  Weight: 158.75 kg

DRUGS (7)
  1. DUONEB [Concomitant]
     Route: 065
  2. LORTAB [Concomitant]
     Route: 065
  3. GABAPENTIN [Concomitant]
     Route: 065
  4. TRAMADOL [Concomitant]
     Route: 065
  5. FLEXERIL [Concomitant]
     Route: 065
  6. LISINOPRIL [Concomitant]
     Route: 065
  7. PRADAXA [Suspect]
     Indication: ATRIAL FIBRILLATION
     Dosage: 300 MG
     Route: 065
     Dates: start: 20110603, end: 201112

REACTIONS (2)
  - Rectal haemorrhage [Recovered/Resolved]
  - Haemorrhagic anaemia [Unknown]
